FAERS Safety Report 20751538 (Version 1)
Quarter: 2022Q2

REPORT INFORMATION
  Report Type: Spontaneous
  Country: US (occurrence: None)
  Receive Date: 20220426
  Receipt Date: 20220426
  Transmission Date: 20220721
  Serious: No
  Sender: FDA-Public Use
  Company Number: None

PATIENT

DRUGS (2)
  1. CYCLOSPORINE [Suspect]
     Active Substance: CYCLOSPORINE
  2. DEVICE [Suspect]
     Active Substance: DEVICE

REACTIONS (3)
  - Circumstance or information capable of leading to medication error [None]
  - Device delivery system issue [None]
  - Syringe issue [None]
